FAERS Safety Report 5909443-8 (Version None)
Quarter: 2008Q4

REPORT INFORMATION
  Report Type: 
  Country: None (occurrence: None)
  Receive Date: 20081006
  Receipt Date: 20080924
  Transmission Date: 20090506
  Serious: Yes (Other)
  Sender: FDA-Public Use
  Company Number: US-PFIZER INC-2008081492

PATIENT
  Sex: Female
  Weight: 63.5 kg

DRUGS (8)
  1. LYRICA [Suspect]
     Indication: FIBROMYALGIA
     Dosage: DAILY DOSE:200MG
     Dates: start: 20080301
  2. LAMICTAL [Interacting]
     Indication: DEPRESSION
     Dates: start: 20080801, end: 20080801
  3. LORATADINE [Concomitant]
  4. BUTALBITAL [Concomitant]
     Indication: HEADACHE
  5. CAFFEINE [Concomitant]
  6. NASONEX [Concomitant]
     Indication: HYPERSENSITIVITY
  7. ZYRTEC [Concomitant]
  8. METHADONE HCL [Concomitant]

REACTIONS (7)
  - BLOOD PRESSURE FLUCTUATION [None]
  - DEPRESSION [None]
  - DRUG INTERACTION [None]
  - HERNIA [None]
  - RASH [None]
  - SOMNOLENCE [None]
  - WEIGHT INCREASED [None]
